FAERS Safety Report 22346252 (Version 1)
Quarter: 2023Q2

REPORT INFORMATION
  Report Type: Spontaneous
  Country: US (occurrence: US)
  Receive Date: 20230519
  Receipt Date: 20230519
  Transmission Date: 20230722
  Serious: Yes (Other)
  Sender: FDA-Public Use
  Company Number: US-JUBILANT CADISTA PHARMACEUTICALS-2023JUB00195

PATIENT
  Age: 47 Year
  Sex: Female

DRUGS (5)
  1. PREDNISONE [Suspect]
     Active Substance: PREDNISONE
     Indication: Immunosuppressant drug therapy
     Dosage: 5 MG, 1X/DAY
  2. PREDNISONE [Suspect]
     Active Substance: PREDNISONE
     Dosage: 2 MG, 1X/DAY, DOSE REDUCED
  3. PREDNISONE [Suspect]
     Active Substance: PREDNISONE
     Dosage: 3 MG, 1X/DAY, DOSE REDUCED
  4. TACROLIMUS [Concomitant]
     Active Substance: TACROLIMUS
     Indication: Immunosuppressant drug therapy
  5. MYCOPHENOLATE MOFETIL [Concomitant]
     Active Substance: MYCOPHENOLATE MOFETIL
     Indication: Immunosuppressant drug therapy
     Dosage: 500 MG, EVERY 12 HOUR

REACTIONS (1)
  - Adrenal insufficiency [Unknown]
